FAERS Safety Report 24706985 (Version 2)
Quarter: 2024Q4

REPORT INFORMATION
  Report Type: Spontaneous
  Country: CN (occurrence: CN)
  Receive Date: 20241206
  Receipt Date: 20241219
  Transmission Date: 20250115
  Serious: Yes (Life-Threatening, Other)
  Sender: PFIZER
  Company Number: CN-PFIZER INC-PV202400158906

PATIENT
  Age: 49 Year
  Sex: Female
  Weight: 49 kg

DRUGS (3)
  1. CYTARABINE [Suspect]
     Active Substance: CYTARABINE
     Indication: Acute myeloid leukaemia
     Dosage: 200.000 MG, 1X/DAY
     Route: 041
     Dates: start: 20241001, end: 20241006
  2. DAUNORUBICIN HYDROCHLORIDE [Suspect]
     Active Substance: DAUNORUBICIN HYDROCHLORIDE
     Indication: Acute myeloid leukaemia
     Dosage: 60 MG, 1X/DAY
     Route: 041
     Dates: start: 20241001, end: 20241003
  3. VENETOCLAX [Suspect]
     Active Substance: VENETOCLAX
     Indication: Acute myeloid leukaemia
     Dosage: 100.000 MG, 1X/DAY
     Route: 048
     Dates: start: 20241101, end: 20241101

REACTIONS (13)
  - Myelosuppression [Recovering/Resolving]
  - Melaena [Unknown]
  - Type 2 diabetes mellitus [Unknown]
  - Pyrexia [Unknown]
  - Asthenia [Unknown]
  - Ecchymosis [Unknown]
  - Decreased appetite [Unknown]
  - Temperature intolerance [Unknown]
  - Chills [Unknown]
  - Muscular weakness [Unknown]
  - Palpitations [Unknown]
  - Dyspnoea exertional [Unknown]
  - Diarrhoea [Unknown]

NARRATIVE: CASE EVENT DATE: 20241018
